FAERS Safety Report 22235909 (Version 1)
Quarter: 2023Q2

REPORT INFORMATION
  Report Type: Spontaneous
  Country: US (occurrence: None)
  Receive Date: 20230419
  Receipt Date: 20230419
  Transmission Date: 20230722
  Serious: Yes (Hospitalization)
  Sender: FDA-Public Use
  Company Number: None

PATIENT
  Sex: Female

DRUGS (3)
  1. EVEROLIMUS [Suspect]
     Active Substance: EVEROLIMUS
     Indication: Soft tissue sarcoma
     Dosage: FREQUENCY : DAILY;?
     Route: 048
     Dates: start: 202304
  2. VOTRIENT [Suspect]
     Active Substance: PAZOPANIB HYDROCHLORIDE
  3. EVEROLIMUS [Suspect]
     Active Substance: EVEROLIMUS
     Indication: Malignant connective tissue neoplasm

REACTIONS (12)
  - Dyspnoea [None]
  - Lethargy [None]
  - Hair colour changes [None]
  - Wheezing [None]
  - Hypoaesthesia [None]
  - Hypoaesthesia [None]
  - Constipation [None]
  - Dysuria [None]
  - Chromaturia [None]
  - Decreased appetite [None]
  - Abdominal pain upper [None]
  - Pyrexia [None]
